FAERS Safety Report 22048384 (Version 9)
Quarter: 2024Q3

REPORT INFORMATION
  Report Type: Spontaneous
  Country: US (occurrence: US)
  Receive Date: 20230301
  Receipt Date: 20240716
  Transmission Date: 20241017
  Serious: Yes (Other)
  Sender: BRISTOL MYERS SQUIBB
  Company Number: US-BRISTOL-MYERS SQUIBB COMPANY-2023-028762

PATIENT
  Age: 81 Year
  Sex: Female

DRUGS (6)
  1. LENALIDOMIDE [Suspect]
     Active Substance: LENALIDOMIDE
     Indication: Plasma cell myeloma
     Dosage: TAKE 1 CAPSULE BY MOUTH EVERY DAY FOR 21 DAYS FOLLOWED BY 1 WEEK OFF EVERY 28 DAYS
     Route: 048
     Dates: start: 20220128
  2. LENALIDOMIDE [Suspect]
     Active Substance: LENALIDOMIDE
     Indication: Plasma cell myeloma in remission
     Dosage: TAKE 1 CAPSULE (10MG) BY MOUTH
     Route: 048
     Dates: start: 20221128
  3. LENALIDOMIDE [Suspect]
     Active Substance: LENALIDOMIDE
     Dosage: TAKE 1 CAPSULE (10MG) BY MOUTH
     Route: 048
     Dates: start: 20221128
  4. LENALIDOMIDE [Suspect]
     Active Substance: LENALIDOMIDE
     Dosage: TAKE 1 CAPSULE (10MG) BY MOUTH EVERY DAY FOR 3 WEEKS, FOLLOWED BY 1 WEEK REST EVERY 28 DAYS
     Route: 048
  5. LENALIDOMIDE [Suspect]
     Active Substance: LENALIDOMIDE
     Route: 048
  6. LENALIDOMIDE [Suspect]
     Active Substance: LENALIDOMIDE
     Dosage: TAKE 1 CAPSULE (5MG) BY MOUTH EVERY DAY FOR 21 DAYS, FOLLOWED BY 1 WEEK REST EVERY 28 DAYS
     Route: 048

REACTIONS (7)
  - Product dose omission in error [Unknown]
  - Constipation [Recovered/Resolved]
  - Diarrhoea [Not Recovered/Not Resolved]
  - Fatigue [Unknown]
  - Salivary gland enlargement [Not Recovered/Not Resolved]
  - Nasopharyngitis [Recovering/Resolving]
  - Product dose omission issue [Unknown]
